FAERS Safety Report 10261546 (Version 2)
Quarter: 2018Q2

REPORT INFORMATION
  Report Type: Spontaneous
  Country: US (occurrence: US)
  Receive Date: 20140626
  Receipt Date: 20180619
  Transmission Date: 20180711
  Serious: No
  Sender: FDA-Public Use
  Company Number: US-009507513-1406USA007792

PATIENT
  Sex: Female

DRUGS (2)
  1. DULERA [Suspect]
     Active Substance: FORMOTEROL FUMARATE DIHYDRATE\MOMETASONE FUROATE
     Dosage: UNK
     Route: 055
  2. DULERA [Suspect]
     Active Substance: FORMOTEROL FUMARATE DIHYDRATE\MOMETASONE FUROATE
     Dosage: 200MCG/5MCG ONE TO TWO PUFFS, TWICE DAILY
     Route: 055

REACTIONS (4)
  - Product quality issue [Unknown]
  - Poor quality drug administered [Unknown]
  - Inappropriate schedule of drug administration [Unknown]
  - No adverse event [Unknown]
